FAERS Safety Report 9436275 (Version 1)
Quarter: 2013Q3

REPORT INFORMATION
  Report Type: Spontaneous
  Country: US (occurrence: US)
  Receive Date: 20130802
  Receipt Date: 20130802
  Transmission Date: 20140515
  Serious: Yes (Hospitalization)
  Sender: FDA-Public Use
  Company Number: US-AMGEN-USASP2013053185

PATIENT
  Age: 58 Year
  Sex: Female

DRUGS (2)
  1. ENBREL [Suspect]
     Indication: PSORIASIS
     Dosage: 50 MG, EVERY 4 DAYS
     Route: 065
     Dates: start: 201306
  2. ENBREL [Suspect]
     Indication: PSORIATIC ARTHROPATHY

REACTIONS (4)
  - Road traffic accident [Not Recovered/Not Resolved]
  - Contusion [Not Recovered/Not Resolved]
  - Lip injury [Not Recovered/Not Resolved]
  - Back pain [Not Recovered/Not Resolved]
